FAERS Safety Report 4765917-7 (Version None)
Quarter: 2005Q3

REPORT INFORMATION
  Report Type: 
  Country: None (occurrence: None)
  Receive Date: 20050912
  Receipt Date: 20050905
  Transmission Date: 20060218
  Serious: Yes (Life-Threatening)
  Sender: FDA-Public Use
  Company Number: PHRM2005FR02379

PATIENT
  Age: 71 Year
  Sex: Male
  Weight: 83 kg

DRUGS (7)
  1. GLEEVEC [Suspect]
     Dosage: 600 MG DAILY
     Route: 048
     Dates: start: 19991231, end: 20010401
  2. GLEEVEC [Suspect]
     Dosage: 400 MG DAILY
     Route: 048
     Dates: start: 20010401
  3. IMOVANE [Concomitant]
  4. ALLOPURINOL [Concomitant]
  5. HYDREA [Concomitant]
  6. ASPEGIC 325 [Concomitant]
  7. PROZAC [Concomitant]

REACTIONS (1)
  - PROSTATE CANCER [None]
